FAERS Safety Report 6333271-5 (Version None)
Quarter: 2009Q3

REPORT INFORMATION
  Report Type: 
  Country: None (occurrence: None)
  Receive Date: 20090828
  Receipt Date: 20090821
  Transmission Date: 20100115
  Serious: Yes (Other)
  Sender: FDA-Public Use
  Company Number: GB-BAYER-200929681GPV

PATIENT
  Age: 50 Year
  Sex: Male

DRUGS (2)
  1. NAPROXEN [Suspect]
     Indication: DRUG USE FOR UNKNOWN INDICATION
     Route: 065
  2. CHAMPIX [Suspect]
     Indication: DRUG USE FOR UNKNOWN INDICATION
     Dosage: UNIT DOSE: 1.5 G
     Route: 065

REACTIONS (5)
  - BACK PAIN [None]
  - HOT FLUSH [None]
  - HYPERSENSITIVITY [None]
  - MAJOR DEPRESSION [None]
  - PHARYNGEAL OEDEMA [None]
